FAERS Safety Report 6404587-9 (Version None)
Quarter: 2009Q4

REPORT INFORMATION
  Report Type: 
  Country: None (occurrence: None)
  Receive Date: 20091016
  Receipt Date: 20091009
  Transmission Date: 20100525
  Serious: Yes (Other)
  Sender: FDA-Public Use
  Company Number: FR-TEVA-210029ISR

PATIENT
  Age: 53 Year
  Sex: Female

DRUGS (2)
  1. ATENOLOL [Suspect]
     Indication: PALPITATIONS
     Dates: start: 20070101, end: 20070701
  2. FOSINOPRIL SODIUM [Concomitant]

REACTIONS (1)
  - HYPERKALAEMIA [None]
